FAERS Safety Report 6421698-2 (Version None)
Quarter: 2009Q4

REPORT INFORMATION
  Report Type: 
  Country: None (occurrence: None)
  Receive Date: 20091030
  Receipt Date: 20091021
  Transmission Date: 20100525
  Serious: Yes (Hospitalization, Disabling, Other)
  Sender: FDA-Public Use
  Company Number: US-WYE-H10764109

PATIENT
  Sex: Female
  Weight: 70.82 kg

DRUGS (4)
  1. PREMARIN [Suspect]
     Indication: PROPHYLAXIS
     Dosage: .625MG
     Route: 048
     Dates: start: 19940701, end: 20051110
  2. PREMARIN [Suspect]
     Indication: OSTEOPOROSIS
  3. HYDROCHLOROTHIAZIDE [Concomitant]
     Indication: HYPERTENSION
     Dosage: UNKNOWN
     Route: 048
  4. ATENOLOL [Concomitant]
     Indication: HYPERTENSION
     Dosage: UNKNOWN
     Route: 048

REACTIONS (2)
  - BREAST CANCER [None]
  - TRANSIENT ISCHAEMIC ATTACK [None]
